FAERS Safety Report 4602342-3 (Version None)
Quarter: 2005Q2

REPORT INFORMATION
  Report Type: 
  Country: None (occurrence: None)
  Receive Date: 20050223
  Receipt Date: 20041116
  Transmission Date: 20051028
  Serious: Yes (Disabling)
  Sender: FDA-Public Use
  Company Number: 210452

PATIENT
  Age: 38 Year
  Sex: Male
  Weight: 131.5 kg

DRUGS (4)
  1. RAPTIVA [Suspect]
     Indication: PSORIASIS
     Dosage: 1.4 ML, 1/WEEK, SUBCUTANEOUS
     Route: 058
     Dates: start: 20040204, end: 20041115
  2. NORVASC [Concomitant]
  3. MOBIC [Concomitant]
  4. LORTAB [Concomitant]

REACTIONS (1)
  - ARTHRITIS [None]
